FAERS Safety Report 4916469-X (Version None)
Quarter: 2006Q1

REPORT INFORMATION
  Report Type: 
  Country: None (occurrence: None)
  Receive Date: 20060214
  Receipt Date: 20060210
  Transmission Date: 20060701
  Serious: Yes (Death, Hospitalization)
  Sender: FDA-Public Use
  Company Number: T05-GER-02765-01

PATIENT
  Age: 84 Year
  Sex: Female

DRUGS (4)
  1. MEMANTINE HCL [Suspect]
     Indication: DEMENTIA ALZHEIMER'S TYPE
     Dosage: 5 MG QD PO
     Route: 048
     Dates: start: 20050718
  2. GALANTAMINE [Suspect]
     Indication: DEMENTIA ALZHEIMER'S TYPE
     Dosage: 8 MG QD
     Dates: start: 20050718
  3. TAMOXIFEN CITRATE [Concomitant]
  4. VALERIANA OFFICINALIS ROOT (VALERIANA OFFICINALIS ROOT DRY EXTRACT) [Concomitant]

REACTIONS (2)
  - ABDOMINAL PAIN [None]
  - CONDITION AGGRAVATED [None]
